FAERS Safety Report 9830421 (Version 2)
Quarter: 2014Q3

REPORT INFORMATION
  Report Type: Spontaneous
  Country: US (occurrence: US)
  Receive Date: 20140120
  Receipt Date: 20140729
  Transmission Date: 20150326
  Serious: Yes (Hospitalization, Other)
  Sender: FDA-Public Use
  Company Number: US-BAYER-2014-009608

PATIENT
  Age: 21 Year
  Sex: Female
  Weight: 65.17 kg

DRUGS (1)
  1. YASMIN [Suspect]
     Active Substance: DROSPIRENONE\ETHINYL ESTRADIOL
     Indication: MENORRHAGIA

REACTIONS (4)
  - Cerebrovascular accident [None]
  - Injury [None]
  - Emotional distress [None]
  - Thrombosis [None]

NARRATIVE: CASE EVENT DATE: 20110823
